FAERS Safety Report 7381464-0 (Version None)
Quarter: 2011Q1

REPORT INFORMATION
  Report Type: 
  Country: None (occurrence: None)
  Receive Date: 20110324
  Receipt Date: 20110324
  Transmission Date: 20110831
  Serious: Yes (Hospitalization, Other)
  Sender: FDA-Public Use
  Company Number: None

PATIENT
  Age: 54 Year
  Sex: Male
  Weight: 90.7194 kg

DRUGS (2)
  1. FLAGYL [Suspect]
     Indication: CLOSTRIDIAL INFECTION
     Dosage: 500 MG 3 TIMES A DAY 1-26-11 THRU 1-30-11; 1 A DAY 2-3-11 + 2-4-11
     Dates: start: 20110126, end: 20110130
  2. FLAGYL [Suspect]
     Indication: CLOSTRIDIAL INFECTION
     Dosage: 500 MG 3 TIMES A DAY 1-26-11 THRU 1-30-11; 1 A DAY 2-3-11 + 2-4-11
     Dates: start: 20110203, end: 20110204

REACTIONS (14)
  - EYELID OEDEMA [None]
  - VOMITING [None]
  - URTICARIA [None]
  - WEIGHT DECREASED [None]
  - BURNING SENSATION [None]
  - ERYTHEMA [None]
  - PARAESTHESIA [None]
  - HYPOAESTHESIA [None]
  - LIP SWELLING [None]
  - ABDOMINAL PAIN UPPER [None]
  - INSOMNIA [None]
  - HYPOPHAGIA [None]
  - BACK PAIN [None]
  - DECREASED APPETITE [None]
